FAERS Safety Report 15239271 (Version 2)
Quarter: 2018Q3

REPORT INFORMATION
  Report Type: Report from Study
  Country: DE (occurrence: DE)
  Receive Date: 20180803
  Receipt Date: 20180807
  Transmission Date: 20181010
  Serious: Yes (Hospitalization)
  Sender: FDA-Public Use
  Company Number: DE-TEVA-2018-DE-933458

PATIENT
  Age: 78 Year
  Sex: Female
  Weight: 57 kg

DRUGS (30)
  1. PREDNISOLONE. [Concomitant]
     Active Substance: PREDNISOLONE
     Indication: RHEUMATOID ARTHRITIS
     Route: 048
     Dates: start: 20171125
  2. PREDNISOLONE. [Concomitant]
     Active Substance: PREDNISOLONE
     Route: 048
     Dates: start: 20171114, end: 20171124
  3. FOLICOMBIN [Concomitant]
     Route: 048
  4. NOVAMIN [Concomitant]
     Route: 041
     Dates: start: 20171113, end: 20171113
  5. THIAMAZOL [Concomitant]
     Active Substance: METHIMAZOLE
     Route: 048
  6. MCP [Concomitant]
     Active Substance: METOCLOPRAMIDE HYDROCHLORIDE
     Indication: NAUSEA
     Dates: start: 20171218, end: 20171228
  7. PREDNISOLONE. [Concomitant]
     Active Substance: PREDNISOLONE
     Route: 048
     Dates: start: 20171125
  8. DEKRISTOL [Concomitant]
     Active Substance: CHOLECALCIFEROL
     Indication: OSTEOPOROSIS
     Route: 048
  9. CARBOPLATIN. [Suspect]
     Active Substance: CARBOPLATIN
     Indication: NON-SMALL CELL LUNG CANCER
     Dosage: MG*MIN/ML
     Route: 041
     Dates: start: 20171116
  10. ABRAXANE [Suspect]
     Active Substance: PACLITAXEL
     Indication: NON-SMALL CELL LUNG CANCER
     Dosage: 80 MG/M2 DAILY;
     Route: 041
     Dates: start: 20171116, end: 20171130
  11. ACTRAPID [Concomitant]
     Active Substance: INSULIN HUMAN
     Indication: DIABETES MELLITUS
     Route: 058
     Dates: start: 20171215, end: 20180103
  12. PULMICORT TURBUHALER [Concomitant]
     Active Substance: BUDESONIDE
     Indication: CHRONIC OBSTRUCTIVE PULMONARY DISEASE
  13. MOVICOL [Concomitant]
     Active Substance: POLYETHYLENE GLYCOL 3350\POTASSIUM CHLORIDE\SODIUM BICARBONATE\SODIUM CHLORIDE
     Route: 048
  14. ALLOPURINOL. [Concomitant]
     Active Substance: ALLOPURINOL
     Route: 048
  15. DIGITOXIN [Concomitant]
     Active Substance: DIGITOXIN
     Route: 048
     Dates: start: 20171216
  16. DIGITOXIN [Concomitant]
     Active Substance: DIGITOXIN
     Route: 041
     Dates: start: 20171215, end: 20171215
  17. PANTOZOL [Concomitant]
     Active Substance: PANTOPRAZOLE SODIUM
     Indication: PROPHYLAXIS
     Route: 048
     Dates: end: 20180115
  18. CLEXANE [Concomitant]
     Active Substance: ENOXAPARIN SODIUM
     Indication: SUPRAVENTRICULAR TACHYCARDIA
     Dosage: .4 ML DAILY;
     Dates: start: 20171220, end: 20180103
  19. AMINOVEN [Concomitant]
     Active Substance: AMINO ACIDS
     Indication: NAUSEA
     Dates: start: 20171215, end: 20180103
  20. METOPROLOL. [Concomitant]
     Active Substance: METOPROLOL
     Indication: HYPERTENSION
     Route: 048
  21. FURESIS [Concomitant]
     Active Substance: FUROSEMIDE
     Indication: PROPHYLAXIS
     Route: 048
     Dates: start: 20171228, end: 20180101
  22. FENTANIL [Concomitant]
     Active Substance: FENTANYL
     Indication: PAIN
     Route: 062
  23. NOVAMIN [Concomitant]
     Indication: PAIN
     Route: 048
  24. ULTIBRO [Concomitant]
     Active Substance: GLYCOPYRRONIUM\INDACATEROL
     Indication: CHRONIC OBSTRUCTIVE PULMONARY DISEASE
     Route: 065
  25. FURESIS [Concomitant]
     Active Substance: FUROSEMIDE
     Route: 048
     Dates: start: 20171214, end: 20171227
  26. FURESIS [Concomitant]
     Active Substance: FUROSEMIDE
     Route: 048
     Dates: start: 20171216
  27. METRONIDAZOLE. [Concomitant]
     Active Substance: METRONIDAZOLE
     Indication: DIARRHOEA INFECTIOUS
     Dates: start: 20171229
  28. PREDNISOLONE. [Concomitant]
     Active Substance: PREDNISOLONE
     Dates: start: 20171229, end: 20171229
  29. FUROSEMIDE. [Concomitant]
     Active Substance: FUROSEMIDE
     Route: 048
     Dates: end: 20171213
  30. FURESIS [Concomitant]
     Active Substance: FUROSEMIDE
     Route: 048
     Dates: start: 20180102, end: 20180115

REACTIONS (8)
  - Anaemia [Recovered/Resolved with Sequelae]
  - White blood cell count decreased [Recovered/Resolved]
  - Pseudomonas bronchitis [Recovered/Resolved]
  - Thrombocytopenia [Recovered/Resolved]
  - Peripheral motor neuropathy [Unknown]
  - Anaemia [Recovered/Resolved]
  - Enterobacter tracheobronchitis [Recovered/Resolved]
  - Anaemia [Not Recovered/Not Resolved]

NARRATIVE: CASE EVENT DATE: 20171123
